FAERS Safety Report 16025454 (Version 1)
Quarter: 2019Q1

REPORT INFORMATION
  Report Type: Spontaneous
  Country: JP (occurrence: JP)
  Receive Date: 20190301
  Receipt Date: 20190301
  Transmission Date: 20190418
  Serious: Yes (Other)
  Sender: FDA-Public Use
  Company Number: JP-BAXTER-2019BAX004348

PATIENT
  Age: 72 Year
  Sex: Female

DRUGS (3)
  1. ENDOXAN 1G [Suspect]
     Active Substance: CYCLOPHOSPHAMIDE
     Indication: NEOPLASM
     Route: 065
  2. VINCRISTINE SULFATE. [Suspect]
     Active Substance: VINCRISTINE SULFATE
     Indication: NEOPLASM
     Route: 065
  3. DACARBAZINE. [Suspect]
     Active Substance: DACARBAZINE
     Indication: NEOPLASM
     Route: 065

REACTIONS (5)
  - Phaeochromocytoma crisis [Recovering/Resolving]
  - Hypertensive emergency [Recovering/Resolving]
  - Tumour lysis syndrome [Recovering/Resolving]
  - Stress cardiomyopathy [Recovering/Resolving]
  - Hyperglycaemia [Recovering/Resolving]
